FAERS Safety Report 7064428-6 (Version None)
Quarter: 2010Q4

REPORT INFORMATION
  Report Type: 
  Country: None (occurrence: None)
  Receive Date: 20101027
  Receipt Date: 20101014
  Transmission Date: 20110411
  Serious: Yes (Other)
  Sender: FDA-Public Use
  Company Number: PHHY2010BR22126

PATIENT
  Sex: Female
  Weight: 55 kg

DRUGS (2)
  1. TEGRETOL-XR [Suspect]
     Dosage: 200 MG, UNK
  2. TEGRETOL-XR [Suspect]
     Dosage: 1 TABLET EVERY 6 HOURS

REACTIONS (15)
  - ALOPECIA [None]
  - ARTHRALGIA [None]
  - DIZZINESS [None]
  - DYSENTERY [None]
  - FALL [None]
  - FATIGUE [None]
  - FEELING ABNORMAL [None]
  - FREQUENT BOWEL MOVEMENTS [None]
  - GASTROINTESTINAL INFECTION [None]
  - MALAISE [None]
  - NERVOUSNESS [None]
  - PAIN [None]
  - TREATMENT NONCOMPLIANCE [None]
  - TREMOR [None]
  - TRIGEMINAL NEURALGIA [None]
